FAERS Safety Report 17113373 (Version 2)
Quarter: 2020Q1

REPORT INFORMATION
  Report Type: Report from Study
  Country: ES (occurrence: ES)
  Receive Date: 20191205
  Receipt Date: 20200109
  Transmission Date: 20200409
  Serious: Yes (Hospitalization)
  Sender: FDA-Public Use
  Company Number: ES-B.I. PHARMACEUTICALS,INC./RIDGEFIELD-2019-BI-116955

PATIENT
  Age: 73 Year
  Sex: Male
  Weight: 65 kg

DRUGS (6)
  1. OFEV [Suspect]
     Active Substance: NINTEDANIB
     Indication: IDIOPATHIC PULMONARY FIBROSIS
     Route: 048
     Dates: start: 20171023
  2. RANITIDINA [RANITIDINE] [Concomitant]
     Active Substance: RANITIDINE
     Indication: GASTRIC DISORDER
     Route: 048
  3. ADIRO [Concomitant]
     Active Substance: ASPIRIN
     Indication: ANTIPLATELET THERAPY
     Route: 048
  4. DOXAZOSINA [DOXAZOSIN] [Concomitant]
     Indication: HYPERTENSION
     Route: 048
  5. FORTASEC [LOPERAMIDE] [Concomitant]
     Indication: DIARRHOEA
     Route: 048
  6. DOXAZOSINA [DOXAZOSIN] [Concomitant]
     Indication: PROSTATIC DISORDER

REACTIONS (1)
  - Idiopathic pulmonary fibrosis [Recovered/Resolved]

NARRATIVE: CASE EVENT DATE: 20191003
